APPROVED DRUG PRODUCT: MONTELUKAST SODIUM
Active Ingredient: MONTELUKAST SODIUM
Strength: EQ 10MG BASE
Dosage Form/Route: TABLET;ORAL
Application: A205683 | Product #001 | TE Code: AB
Applicant: ANBISON LABORATORY CO LTD
Approved: Jan 12, 2016 | RLD: No | RS: No | Type: RX